FAERS Safety Report 15426999 (Version 2)
Quarter: 2018Q4

REPORT INFORMATION
  Report Type: Report from Study
  Country: US (occurrence: US)
  Receive Date: 20180925
  Receipt Date: 20181009
  Transmission Date: 20190204
  Serious: Yes (Death, Life-Threatening, Other)
  Sender: FDA-Public Use
  Company Number: US-TEVA-2018-US-957643

PATIENT
  Age: 67 Year
  Sex: Male

DRUGS (1)
  1. METFORMIN [Suspect]
     Active Substance: METFORMIN HYDROCHLORIDE
     Route: 065

REACTIONS (14)
  - Depressed level of consciousness [Unknown]
  - Coagulopathy [Unknown]
  - Toxicity to various agents [Fatal]
  - Acute respiratory distress syndrome [Unknown]
  - Coma [Unknown]
  - Gastrointestinal haemorrhage [Unknown]
  - Leukocytosis [Unknown]
  - Metabolic acidosis [Unknown]
  - Acute kidney injury [Unknown]
  - Anion gap abnormal [Unknown]
  - Electrocardiogram QT prolonged [Unknown]
  - Acute lung injury [Unknown]
  - Hypotension [Unknown]
  - Respiratory depression [Unknown]
